FAERS Safety Report 15827781 (Version 1)
Quarter: 2019Q1

REPORT INFORMATION
  Report Type: Spontaneous
  Country: US (occurrence: US)
  Receive Date: 20190115
  Receipt Date: 20190115
  Transmission Date: 20190417
  Serious: No
  Sender: FDA-Public Use
  Company Number: US-REGENERON PHARMACEUTICALS, INC.-2018-18158

PATIENT

DRUGS (1)
  1. EYLEA [Suspect]
     Active Substance: AFLIBERCEPT
     Indication: MACULAR DEGENERATION
     Dosage: LEFT EYE
     Route: 031

REACTIONS (3)
  - Vitreous floaters [Recovering/Resolving]
  - Vision blurred [Recovering/Resolving]
  - Eye swelling [Recovering/Resolving]
